FAERS Safety Report 13398994 (Version 2)
Quarter: 2017Q4

REPORT INFORMATION
  Report Type: Report from Study
  Country: None (occurrence: US)
  Receive Date: 20170404
  Receipt Date: 20171005
  Transmission Date: 20180320
  Serious: Yes (Hospitalization)
  Sender: FDA-Public Use
  Company Number: US-ABBVIE-16K-163-1772318-00

PATIENT
  Sex: Female

DRUGS (2)
  1. HUMIRA [Suspect]
     Active Substance: ADALIMUMAB
     Indication: CROHN^S DISEASE
     Route: 058
  2. HUMIRA [Suspect]
     Active Substance: ADALIMUMAB
     Route: 058

REACTIONS (7)
  - Vitamin D deficiency [Recovering/Resolving]
  - Asthenia [Unknown]
  - Mucous stools [Unknown]
  - Haematochezia [Unknown]
  - Crohn^s disease [Unknown]
  - Fatigue [Unknown]
  - Dyschezia [Unknown]
